FAERS Safety Report 5004179-2 (Version None)
Quarter: 2006Q2

REPORT INFORMATION
  Report Type: 
  Country: None (occurrence: None)
  Receive Date: 20060517
  Receipt Date: 20060511
  Transmission Date: 20061013
  Serious: Yes (Hospitalization, Other)
  Sender: FDA-Public Use
  Company Number: DE-JNJFOC-20060502942

PATIENT
  Sex: Female

DRUGS (7)
  1. RISPERDAL [Suspect]
     Route: 048
  2. RISPERDAL [Suspect]
     Indication: SCHIZOPHRENIA
     Route: 048
  3. CLOZAPINE [Suspect]
  4. CLOZAPINE [Suspect]
     Indication: SCHIZOPHRENIA
  5. ORFIRIL LONG [Suspect]
     Indication: SCHIZOPHRENIA
  6. TRUXAL [Suspect]
     Indication: SCHIZOPHRENIA
     Route: 048
  7. CIPRAMIL [Suspect]
     Indication: SCHIZOPHRENIA

REACTIONS (2)
  - HOSPITALISATION [None]
  - MYOCLONUS [None]
